FAERS Safety Report 21935166 (Version 2)
Quarter: 2023Q2

REPORT INFORMATION
  Report Type: Spontaneous
  Country: JP (occurrence: JP)
  Receive Date: 20230201
  Receipt Date: 20230403
  Transmission Date: 20230721
  Serious: Yes (Hospitalization, Other)
  Sender: FDA-Public Use
  Company Number: JP-ASTELLAS-2023JP001110

PATIENT
  Age: 4 Decade
  Sex: Female

DRUGS (1)
  1. TACROLIMUS [Suspect]
     Active Substance: TACROLIMUS
     Indication: Immunosuppressant drug therapy
     Dosage: 1.0 MG/DAY, UNKNOWN FREQ.
     Route: 048
     Dates: start: 2000

REACTIONS (3)
  - Nephropathy [Recovering/Resolving]
  - Hypocomplementaemia [Recovering/Resolving]
  - Hepatic cirrhosis [Unknown]

NARRATIVE: CASE EVENT DATE: 20220401
